FAERS Safety Report 9758484 (Version 1)
Quarter: 2013Q4

REPORT INFORMATION
  Report Type: Spontaneous
  Country: US (occurrence: None)
  Receive Date: 20131213
  Receipt Date: 20131213
  Transmission Date: 20140711
  Serious: Yes (Hospitalization)
  Sender: FDA-Public Use
  Company Number: None

PATIENT
  Age: 28 Year
  Sex: Male
  Weight: 73.07 kg

DRUGS (2)
  1. EVEROLIMUS [Suspect]
     Indication: HODGKIN^S DISEASE
     Route: 048
     Dates: start: 20130820
  2. LENALIDOMIDE [Suspect]
     Route: 048
     Dates: start: 20130820

REACTIONS (2)
  - Anaemia [None]
  - Upper respiratory tract infection [None]
